FAERS Safety Report 6979074-X (Version None)
Quarter: 2010Q3

REPORT INFORMATION
  Report Type: 
  Country: None (occurrence: None)
  Receive Date: 20100908
  Receipt Date: 20100823
  Transmission Date: 20110219
  Serious: Yes (Other)
  Sender: FDA-Public Use
  Company Number: 2010-00865

PATIENT
  Age: 59 Year
  Sex: Male
  Weight: 93.441 kg

DRUGS (2)
  1. AMLODIPINE BESYLATE AND BENAZEPRIL HYDROCHLORIDE [Suspect]
     Indication: HYPERTENSION
     Dosage: 10/20 MG (1 IN 1 D), PER ORAL
     Route: 048
     Dates: start: 20100401, end: 20100501
  2. ALPRAZOLAM TAB 0.25 MG [Concomitant]

REACTIONS (6)
  - BLISTER [None]
  - HAEMORRHAGE [None]
  - JOINT SWELLING [None]
  - RASH ERYTHEMATOUS [None]
  - SCAR [None]
  - SKIN ULCER [None]
